FAERS Safety Report 13090198 (Version 1)
Quarter: 2017Q1

REPORT INFORMATION
  Report Type: Spontaneous
  Country: FR (occurrence: FR)
  Receive Date: 20170105
  Receipt Date: 20170105
  Transmission Date: 20170428
  Serious: Yes (Hospitalization)
  Sender: FDA-Public Use
  Company Number: FR-ABBVIE-17P-056-1827403-00

PATIENT
  Age: 40 Year
  Sex: Male

DRUGS (11)
  1. ALDACTONE [Suspect]
     Active Substance: SPIRONOLACTONE
     Indication: ASCITES
  2. PREZISTA [Suspect]
     Active Substance: DARUNAVIR ETHANOLATE
     Indication: HIV INFECTION
     Route: 065
     Dates: start: 20161028, end: 20161111
  3. OFLOXACINE [Suspect]
     Active Substance: OFLOXACIN
     Indication: PRODUCT USED FOR UNKNOWN INDICATION
     Route: 065
     Dates: start: 20161101, end: 20161114
  4. ALDACTONE [Suspect]
     Active Substance: SPIRONOLACTONE
     Indication: HEPATIC FAILURE
     Route: 048
     Dates: start: 20161028, end: 20161111
  5. LASILIX [Suspect]
     Active Substance: FUROSEMIDE
     Indication: ASCITES
  6. TRUVADA [Suspect]
     Active Substance: EMTRICITABINE\TENOFOVIR DISOPROXIL FUMARATE
     Indication: HIV INFECTION
     Dosage: 200/245 MG DAILY
     Route: 048
     Dates: start: 20161028, end: 20161111
  7. LASILIX [Suspect]
     Active Substance: FUROSEMIDE
     Indication: HEPATIC FAILURE
     Route: 048
     Dates: start: 20161028, end: 20161111
  8. ALDACTONE [Suspect]
     Active Substance: SPIRONOLACTONE
     Indication: OEDEMA
  9. LASILIX [Suspect]
     Active Substance: FUROSEMIDE
     Indication: OEDEMA
  10. NORVIR [Suspect]
     Active Substance: RITONAVIR
     Indication: HIV INFECTION
     Route: 048
     Dates: start: 20161028, end: 20161111
  11. BACTRIM [Suspect]
     Active Substance: SULFAMETHOXAZOLE\TRIMETHOPRIM
     Indication: PRODUCT USED FOR UNKNOWN INDICATION
     Dosage: 400/80MG DAILY
     Route: 048

REACTIONS (8)
  - Renal impairment [Unknown]
  - Acute kidney injury [Recovered/Resolved]
  - Renal failure [Recovered/Resolved]
  - Urinary tract infection [Unknown]
  - Renal tubular disorder [Unknown]
  - Enterococcal infection [Unknown]
  - Renal tubular acidosis [Recovered/Resolved]
  - Prerenal failure [Recovered/Resolved]

NARRATIVE: CASE EVENT DATE: 201611
